FAERS Safety Report 7758418-5 (Version None)
Quarter: 2011Q3

REPORT INFORMATION
  Report Type: 
  Country: None (occurrence: None)
  Receive Date: 20110919
  Receipt Date: 20110916
  Transmission Date: 20111222
  Serious: No
  Sender: FDA-Public Use
  Company Number: US-PFIZER INC-2011220522

PATIENT
  Sex: Female

DRUGS (4)
  1. GEODON [Suspect]
     Dosage: 60 MG, UNK
  2. PHENDIMETRAZINE [Concomitant]
     Indication: WEIGHT DECREASED
     Dosage: 35 MG BY SPLITTING THE TABLET INTO TWO AND TAKING ONE HALF THREE TIMES A DAY
     Route: 048
  3. KLONOPIN [Concomitant]
     Dosage: 0.5 MG, UNK
  4. WELLBUTRIN XL [Concomitant]
     Dosage: 300 MG, UNK

REACTIONS (1)
  - ALOPECIA [None]
